FAERS Safety Report 15951961 (Version 3)
Quarter: 2019Q1

REPORT INFORMATION
  Report Type: Report from Study
  Country: None (occurrence: US)
  Receive Date: 20190212
  Receipt Date: 20190228
  Transmission Date: 20190417
  Serious: Yes (Death, Hospitalization, Other)
  Sender: FDA-Public Use
  Company Number: US-ABBVIE-19K-163-2662372-00

PATIENT
  Age: 82 Year
  Sex: Male
  Weight: 70.37 kg

DRUGS (3)
  1. HUMIRA [Suspect]
     Active Substance: ADALIMUMAB
     Indication: PSORIASIS
     Route: 058
     Dates: start: 201707
  2. HUMIRA [Suspect]
     Active Substance: ADALIMUMAB
     Indication: PSORIASIS
  3. LISINOPRIL. [Concomitant]
     Active Substance: LISINOPRIL
     Indication: HYPERTENSION

REACTIONS (9)
  - Acute respiratory distress syndrome [Fatal]
  - Psoriasis [Fatal]
  - Septic shock [Fatal]
  - Urinary tract infection [Fatal]
  - Coma [Unknown]
  - Immunosuppression [Fatal]
  - Tremor [Unknown]
  - Malaise [Unknown]
  - Prostate cancer [Unknown]

NARRATIVE: CASE EVENT DATE: 20190127
